FAERS Safety Report 15919016 (Version 6)
Quarter: 2019Q3

REPORT INFORMATION
  Report Type: Spontaneous
  Country: US (occurrence: US)
  Receive Date: 20190205
  Receipt Date: 20190911
  Transmission Date: 20191004
  Serious: Yes (Hospitalization)
  Sender: FDA-Public Use
  Company Number: US-LEXICON PHARMACEUTICALS, INC-19-1606-00082

PATIENT
  Sex: Male

DRUGS (17)
  1. METFORMIN [Concomitant]
     Active Substance: METFORMIN HYDROCHLORIDE
  2. ZENPEP [Concomitant]
     Active Substance: PANCRELIPASE AMYLASE\PANCRELIPASE LIPASE\PANCRELIPASE PROTEASE
  3. PANTOPRAZOLE SODIUM. [Concomitant]
     Active Substance: PANTOPRAZOLE SODIUM
  4. PROBIOTIC [Concomitant]
     Active Substance: PROBIOTICS NOS
  5. LEVOTHYROXIN [Concomitant]
     Active Substance: LEVOTHYROXINE
  6. TELOTRISTAT ETHYL [Suspect]
     Active Substance: TELOTRISTAT ETHYL
     Indication: BILE DUCT CANCER
  7. TELOTRISTAT ETHYL [Suspect]
     Active Substance: TELOTRISTAT ETHYL
     Indication: CARCINOID SYNDROME
     Route: 048
     Dates: start: 20190104
  8. TOLTERODINE TARTRATE. [Concomitant]
     Active Substance: TOLTERODINE TARTRATE
  9. ATORVASTATIN CALCIUM. [Concomitant]
     Active Substance: ATORVASTATIN CALCIUM
  10. TAMSULOSIN [Concomitant]
     Active Substance: TAMSULOSIN
  11. VITAMIN B12 [Concomitant]
     Active Substance: CYANOCOBALAMIN
  12. SANDOSTATIN [Concomitant]
     Active Substance: OCTREOTIDE ACETATE
  13. HYDROCHLOROTHIAZIDE. [Concomitant]
     Active Substance: HYDROCHLOROTHIAZIDE
  14. LISINOPRIL. [Concomitant]
     Active Substance: LISINOPRIL
  15. IRBESARTRAN [Concomitant]
  16. TERAZOSIN [Concomitant]
     Active Substance: TERAZOSIN HYDROCHLORIDE
  17. ASPIRIN. [Concomitant]
     Active Substance: ASPIRIN

REACTIONS (6)
  - Hospitalisation [Unknown]
  - Weight decreased [Unknown]
  - Fatigue [Not Recovered/Not Resolved]
  - Decreased appetite [Unknown]
  - Abdominal pain [Recovered/Resolved]
  - Contusion [Unknown]
